FAERS Safety Report 8164261 (Version 2)
Quarter: 2012Q4

REPORT INFORMATION
  Report Type: 
  Country: US (occurrence: US)
  Receive Date: 20110930
  Receipt Date: 20121019
  Transmission Date: 20130627
  Serious: Yes (Other)
  Sender: FDA-Public Use
  Company Number: US-ASTRAZENECA-2010SE57303

PATIENT
  Age: 72 Year
  Sex: Female

DRUGS (2)
  1. ARIMIDEX [Suspect]
     Route: 048
     Dates: start: 20101004, end: 20101101
  2. ARIMIDEX [Suspect]
     Route: 048

REACTIONS (5)
  - Neoplasm malignant [Unknown]
  - Neoplasm [Unknown]
  - Pain in extremity [Recovered/Resolved]
  - Malaise [Unknown]
  - Adverse event [Unknown]
